FAERS Safety Report 5316002-7 (Version None)
Quarter: 2007Q2

REPORT INFORMATION
  Report Type: 
  Country: None (occurrence: None)
  Receive Date: 20070503
  Receipt Date: 20070423
  Transmission Date: 20071010
  Serious: Yes (Death, Hospitalization)
  Sender: FDA-Public Use
  Company Number: IE-ROCHE-491120

PATIENT
  Age: 77 Year
  Sex: Female
  Weight: 57 kg

DRUGS (6)
  1. XELODA [Suspect]
     Dosage: DOSE: 1000MG/M2.
     Route: 048
     Dates: start: 20070307
  2. NEORECORMON [Concomitant]
  3. TENORMIN [Concomitant]
     Dosage: }5 YEAR USAGE.
  4. LIPITOR [Concomitant]
     Dosage: }5 YEARS USAGE.
  5. LASIX [Concomitant]
     Dosage: }5 YEAR USAGE.
  6. SOLPADEINE [Concomitant]
     Dosage: }5 YEARS USAGE.

REACTIONS (2)
  - DIARRHOEA [None]
  - NEUTROPENIA [None]
